FAERS Safety Report 9904708 (Version 1)
Quarter: 2014Q1

REPORT INFORMATION
  Report Type: Spontaneous
  Country: US (occurrence: US)
  Receive Date: 20140218
  Receipt Date: 20140218
  Transmission Date: 20141002
  Serious: Yes (Hospitalization, Other)
  Sender: FDA-Public Use
  Company Number: US-PURDUE-USA-2014-0111142

PATIENT
  Age: 26 Year
  Sex: Female
  Weight: 77.98 kg

DRUGS (3)
  1. DILAUDID TABLET [Suspect]
     Indication: INTERVERTEBRAL DISC PROTRUSION
     Dosage: 2 MG, DAILY
     Route: 048
     Dates: start: 20140121, end: 20140121
  2. LUPRON DEPOT [Suspect]
     Indication: ENDOMETRIOSIS
     Dosage: 3.75 MG, DAILY
     Route: 030
     Dates: start: 201312
  3. LEVOTHYROXINE [Concomitant]
     Indication: PRODUCT USED FOR UNKNOWN INDICATION
     Dosage: UNK
     Route: 065

REACTIONS (7)
  - Overdose [Unknown]
  - Lip discolouration [Recovered/Resolved]
  - Nail discolouration [Recovered/Resolved]
  - Loss of consciousness [Unknown]
  - Convulsion [Recovered/Resolved]
  - Vomiting [Recovered/Resolved]
  - Malaise [Unknown]
